FAERS Safety Report 9538258 (Version 1)
Quarter: 2013Q3

REPORT INFORMATION
  Report Type: Spontaneous
  Country: US (occurrence: US)
  Receive Date: 20130920
  Receipt Date: 20130920
  Transmission Date: 20140515
  Serious: No
  Sender: FDA-Public Use
  Company Number: US-009507513-1309USA007915

PATIENT
  Age: 53 Year
  Sex: Male
  Weight: 99.77 kg

DRUGS (8)
  1. VICTRELIS [Suspect]
     Indication: HEPATITIS C
     Dosage: 800 MG (4X200 MG CAPSULES), TID (EVERY 7-9 HOURS)
     Route: 048
     Dates: start: 201301
  2. REBETOL [Suspect]
     Indication: HEPATITIS C
     Dosage: UNK
     Dates: start: 201301
  3. PEGASYS [Suspect]
     Indication: HEPATITIS C
     Dosage: UNK
     Dates: start: 201301
  4. CYANOCOBALAMIN [Concomitant]
     Dosage: 1000 CR
  5. MILK THISTLE [Concomitant]
  6. TYLENOL [Concomitant]
  7. XANAX [Concomitant]
  8. ADVIL [Concomitant]
     Dosage: UNK
     Dates: end: 2013

REACTIONS (4)
  - Epistaxis [Unknown]
  - Platelet count decreased [Unknown]
  - Incorrect product storage [Unknown]
  - Accidental overdose [Unknown]
